FAERS Safety Report 6499142-9 (Version None)
Quarter: 2009Q4

REPORT INFORMATION
  Report Type: 
  Country: None (occurrence: None)
  Receive Date: 20091127
  Receipt Date: 20081209
  Transmission Date: 20100525
  Serious: Yes (Disabling)
  Sender: FDA-Public Use
  Company Number: WAES 0707USA05061

PATIENT
  Age: 49 Year
  Sex: Female

DRUGS (3)
  1. FOSAMAX [Suspect]
     Indication: OSTEOPOROSIS
     Dosage: 5 MG; DAILY; PO
     Route: 048
     Dates: start: 20000101, end: 20051203
  2. PREMARIN [Concomitant]
  3. FOSAMAX [Suspect]
     Indication: OSTEOPOROSIS
     Dosage: 70 MG/WKY/PO
     Route: 048
     Dates: start: 20051203

REACTIONS (7)
  - OSTEOMYELITIS [None]
  - OSTEONECROSIS [None]
  - PNEUMONITIS [None]
  - SINUSITIS [None]
  - THYROID DISORDER [None]
  - TOOTH DISORDER [None]
  - UPPER LIMB FRACTURE [None]
